FAERS Safety Report 20151383 (Version 2)
Quarter: 2022Q2

REPORT INFORMATION
  Report Type: Spontaneous
  Country: US (occurrence: US)
  Receive Date: 20211206
  Receipt Date: 20220512
  Transmission Date: 20220721
  Serious: No
  Sender: FDA-Public Use
  Company Number: US-PFIZER INC-202101655535

PATIENT
  Age: 73 Year
  Sex: Female
  Weight: 65.76 kg

DRUGS (4)
  1. LATANOPROST [Suspect]
     Active Substance: LATANOPROST
     Indication: Intraocular pressure test abnormal
     Dosage: NIGHTLY
     Dates: start: 20211116
  2. LATANOPROST [Suspect]
     Active Substance: LATANOPROST
     Dosage: NIGHTLY
  3. AZOPT [Concomitant]
     Active Substance: BRINZOLAMIDE
     Dosage: UNK
     Dates: start: 1986
  4. THERATEARS [Concomitant]
     Active Substance: CARBOXYMETHYLCELLULOSE SODIUM
     Dosage: UNK, (TEAR DROPS) (PRESERVATIVE FREE)
     Dates: start: 2011

REACTIONS (2)
  - Eye pain [Recovered/Resolved]
  - Photophobia [Recovered/Resolved]

NARRATIVE: CASE EVENT DATE: 20211117
